FAERS Safety Report 10301175 (Version 2)
Quarter: 2014Q4

REPORT INFORMATION
  Report Type: Spontaneous
  Country: IT (occurrence: IT)
  Receive Date: 20140714
  Receipt Date: 20141016
  Transmission Date: 20150528
  Serious: Yes (Hospitalization)
  Sender: FDA-Public Use
  Company Number: IT-PFIZER INC-2014193712

PATIENT
  Age: 51 Year
  Sex: Female

DRUGS (4)
  1. ENDOXAN-BAXTER [Suspect]
     Active Substance: CYCLOPHOSPHAMIDE
     Indication: BREAST CANCER
     Dosage: 180 MG, TOTAL
     Route: 042
     Dates: start: 20140624, end: 20140624
  2. NOVALGIN [Concomitant]
     Active Substance: METAMIZOLE SODIUM
  3. LANSOPRAZOLO [Concomitant]
     Active Substance: LANSOPRAZOLE
     Dosage: 30 MG, UNK
  4. EPIRUBICIN HCL [Suspect]
     Active Substance: EPIRUBICIN HYDROCHLORIDE
     Indication: BREAST CANCER
     Dosage: 150 MG, TOTAL
     Route: 042
     Dates: start: 20140624, end: 20140624

REACTIONS (3)
  - Dysentery [Recovering/Resolving]
  - Leukopenia [Recovering/Resolving]
  - Febrile neutropenia [Recovering/Resolving]

NARRATIVE: CASE EVENT DATE: 20140701
